FAERS Safety Report 4830161-1 (Version None)
Quarter: 2005Q4

REPORT INFORMATION
  Report Type: 
  Country: None (occurrence: None)
  Receive Date: 20051117
  Receipt Date: 20050930
  Transmission Date: 20060501
  Serious: Yes (Hospitalization)
  Sender: FDA-Public Use
  Company Number: US-MERCK-0510USA00723

PATIENT
  Age: 49 Year
  Sex: Female
  Weight: 77 kg

DRUGS (11)
  1. VIOXX [Suspect]
     Indication: ARTHRITIS
     Route: 048
     Dates: start: 20000320, end: 20040802
  2. ASPIRIN [Concomitant]
     Route: 065
  3. BENICAR [Concomitant]
     Route: 065
  4. GLYBURIDE [Concomitant]
     Route: 065
  5. LISINOPRIL [Concomitant]
     Route: 065
  6. OLMESARTAN MEDOXOMIL [Concomitant]
     Route: 065
  7. OLANZAPINE [Concomitant]
     Route: 065
  8. SERTRALINE HYDROCHLORIDE [Concomitant]
     Route: 065
  9. TRIAMTERENE [Concomitant]
     Route: 065
  10. ZYPREXA [Concomitant]
     Route: 065
  11. VERAPAMIL MSD LP [Concomitant]
     Route: 065

REACTIONS (1)
  - MYOCARDIAL INFARCTION [None]
